FAERS Safety Report 7276149-5 (Version None)
Quarter: 2011Q1

REPORT INFORMATION
  Report Type: 
  Country: None (occurrence: None)
  Receive Date: 20110204
  Receipt Date: 20110124
  Transmission Date: 20110831
  Serious: Yes (Other)
  Sender: FDA-Public Use
  Company Number: PHHY2011US05557

PATIENT
  Age: 31 Year
  Sex: Male

DRUGS (9)
  1. TRILEPTAL [Suspect]
     Indication: BIPOLAR I DISORDER
     Dosage: 600 MG, BID
  2. DAYQUIL [Concomitant]
     Indication: INFLUENZA LIKE ILLNESS
     Dosage: UNK
     Dates: start: 20101101
  3. BUPROPION [Concomitant]
     Dosage: 75 MG, BID
  4. NYQUIL [Concomitant]
     Indication: INFLUENZA LIKE ILLNESS
     Dosage: UNK
     Dates: start: 20101101
  5. CLONAZEPAM [Concomitant]
     Dosage: 2 MG, BID
  6. RISPERIDONE [Concomitant]
     Dosage: 6 MG, UNK
  7. OXCARBAZEPINE [Suspect]
     Indication: BIPOLAR I DISORDER
  8. ZALEPLON [Concomitant]
     Dosage: 10 MG, UNK
  9. TRILEPTAL [Suspect]
     Dosage: 750 MG, BID

REACTIONS (3)
  - CHEST DISCOMFORT [None]
  - BRAIN OEDEMA [None]
  - HYPOMANIA [None]
